FAERS Safety Report 8803206 (Version 2)
Quarter: 2012Q4

REPORT INFORMATION
  Report Type: 
  Country: AU (occurrence: AU)
  Receive Date: 20120924
  Receipt Date: 20121018
  Transmission Date: 20130627
  Serious: Yes (Hospitalization, Other)
  Sender: FDA-Public Use
  Company Number: AU-AMGEN-AUSSP2012059192

PATIENT
  Age: 55 Year
  Sex: Female
  Weight: 47 kg

DRUGS (6)
  1. PROLIA [Suspect]
     Indication: OSTEOPOROSIS
     Dosage: 60 mg, q6mo
     Route: 058
     Dates: start: 20120621
  2. CHOLECALCIFEROL [Concomitant]
     Indication: VITAMIN D DEFICIENCY
     Dosage: 100 mug, qd
     Route: 048
     Dates: start: 20120329
  3. PREDNISOLONE [Concomitant]
     Indication: RENAL TRANSPLANT
     Dosage: 3 mg, qd
     Route: 048
  4. OMEPRAZOLE [Concomitant]
     Dosage: 20 mg, qd
     Route: 048
  5. WARFARIN [Concomitant]
     Indication: DEEP VEIN THROMBOSIS
     Dosage: 2 mg, qhs
     Route: 048
     Dates: start: 2003
  6. EPOETIN ALFA [Concomitant]
     Indication: RENAL FAILURE CHRONIC
     Dosage: 8000 IU, qwk
     Route: 058

REACTIONS (7)
  - Supraventricular tachycardia [Recovered/Resolved]
  - Altered state of consciousness [Recovered/Resolved]
  - Dysaesthesia [Recovered/Resolved]
  - Paraesthesia [Recovered/Resolved]
  - Asthenia [Recovered/Resolved]
  - Hypoaesthesia [Unknown]
  - Hypocalcaemia [Recovered/Resolved]
